FAERS Safety Report 15455415 (Version 1)
Quarter: 2018Q4

REPORT INFORMATION
  Report Type: Spontaneous
  Country: GB (occurrence: GB)
  Receive Date: 20181002
  Receipt Date: 20181002
  Transmission Date: 20190204
  Serious: Yes (Hospitalization)
  Sender: FDA-Public Use
  Company Number: GB-MYLANLABS-2018M1071068

PATIENT
  Age: 26 Year
  Sex: Female
  Weight: 68.3 kg

DRUGS (1)
  1. TOPIRAMATE. [Suspect]
     Active Substance: TOPIRAMATE
     Indication: EPILEPSY
     Dosage: 200 MG, QD
     Route: 048
     Dates: end: 201703

REACTIONS (2)
  - Paranoia [Recovered/Resolved]
  - Hallucination [Recovered/Resolved]
